FAERS Safety Report 17267131 (Version 2)
Quarter: 2019Q4

REPORT INFORMATION
  Report Type: Spontaneous
  Country: US (occurrence: US)
  Receive Date: 20191219
  Receipt Date: 20191219
  Transmission Date: 20200122
  Serious: Yes (Other)
  Sender: FDA-Public Use
  Company Number: None

PATIENT
  Age: 22 Year
  Sex: Female
  Weight: 47.63 kg

DRUGS (1)
  1. NEXPLANON [Suspect]
     Active Substance: ETONOGESTREL
     Indication: CONTRACEPTIVE IMPLANT
     Dates: start: 20190620, end: 20191022

REACTIONS (6)
  - Chest discomfort [None]
  - Hypersensitivity [None]
  - Abdominal pain [None]
  - Implant site discolouration [None]
  - Implant site pain [None]
  - Dyspnoea [None]

NARRATIVE: CASE EVENT DATE: 20190705
